FAERS Safety Report 9172224 (Version 1)
Quarter: 2013Q1

REPORT INFORMATION
  Report Type: Spontaneous
  Country: IT (occurrence: IT)
  Receive Date: 20130319
  Receipt Date: 20130319
  Transmission Date: 20140127
  Serious: Yes (Hospitalization)
  Sender: FDA-Public Use
  Company Number: IT-PFIZER INC-2013088252

PATIENT
  Age: 35 Year
  Sex: Female

DRUGS (2)
  1. XANAX [Suspect]
     Dosage: 20 MG, SINGLE
     Route: 048
     Dates: start: 20130309, end: 20130309
  2. LEXOTAN [Suspect]
     Dosage: 20 ML, SINGLE
     Route: 048
     Dates: start: 20130309, end: 20130309

REACTIONS (5)
  - Intentional overdose [Recovered/Resolved]
  - Aphasia [Recovered/Resolved]
  - Confusional state [Recovered/Resolved]
  - Oxygen saturation decreased [Unknown]
  - Stress [Unknown]
